FAERS Safety Report 9613934 (Version 1)
Quarter: 2013Q4

REPORT INFORMATION
  Report Type: Report from Study
  Country: ES (occurrence: ES)
  Receive Date: 20131011
  Receipt Date: 20131011
  Transmission Date: 20140711
  Serious: Yes (Other)
  Sender: FDA-Public Use
  Company Number: ES-PFIZER INC-2013286315

PATIENT
  Age: 55 Year
  Sex: Male

DRUGS (3)
  1. CYTARABINE [Suspect]
     Indication: PRECURSOR B-LYMPHOBLASTIC LYMPHOMA
     Dosage: UNK
     Dates: start: 201011
  2. IDARUBICIN HCL [Suspect]
     Indication: PRECURSOR B-LYMPHOBLASTIC LYMPHOMA
     Dosage: UNK
     Dates: start: 201011
  3. FLUDARABINE PHOSPHATE [Suspect]
     Indication: PRECURSOR B-LYMPHOBLASTIC LYMPHOMA
     Dosage: UNK
     Dates: start: 201011

REACTIONS (3)
  - Neutropenia [Unknown]
  - Pyrexia [Unknown]
  - Cough [Unknown]
